FAERS Safety Report 11867736 (Version 4)
Quarter: 2016Q3

REPORT INFORMATION
  Report Type: Spontaneous
  Country: US (occurrence: US)
  Receive Date: 20151224
  Receipt Date: 20160810
  Transmission Date: 20161109
  Serious: Yes (Life-Threatening, Hospitalization)
  Sender: FDA-Public Use
  Company Number: US-JNJFOC-20151218947

PATIENT
  Age: 31 Year
  Sex: Female

DRUGS (4)
  1. XARELTO [Suspect]
     Active Substance: RIVAROXABAN
     Indication: PULMONARY EMBOLISM
     Route: 048
     Dates: start: 20130730, end: 20131015
  2. ALPRAZOLAM. [Concomitant]
     Active Substance: ALPRAZOLAM
     Indication: PRODUCT USED FOR UNKNOWN INDICATION
     Route: 065
  3. AMPHETAMINE [Concomitant]
     Active Substance: AMPHETAMINE
     Indication: PRODUCT USED FOR UNKNOWN INDICATION
     Route: 065
  4. XARELTO [Suspect]
     Active Substance: RIVAROXABAN
     Indication: PULMONARY EMBOLISM
     Route: 048
     Dates: start: 201206

REACTIONS (4)
  - Haemoptysis [Recovering/Resolving]
  - Subarachnoid haemorrhage [Recovering/Resolving]
  - Cerebrovascular accident [Recovering/Resolving]
  - Depression [Unknown]

NARRATIVE: CASE EVENT DATE: 201310
